FAERS Safety Report 10662561 (Version 1)
Quarter: 2014Q4

REPORT INFORMATION
  Report Type: Spontaneous
  Country: HU (occurrence: HU)
  Receive Date: 20141218
  Receipt Date: 20141218
  Transmission Date: 20150529
  Serious: Yes (Hospitalization)
  Sender: FDA-Public Use
  Company Number: HU-TEVA-529401ISR

PATIENT
  Age: 60 Year
  Sex: Female

DRUGS (1)
  1. EPIRUBICIN [Suspect]
     Active Substance: EPIRUBICIN
     Indication: BLADDER CANCER
     Route: 043
     Dates: start: 201210

REACTIONS (2)
  - Renal abscess [Not Recovered/Not Resolved]
  - Pyrexia [Not Recovered/Not Resolved]

NARRATIVE: CASE EVENT DATE: 201306
